FAERS Safety Report 9247365 (Version 1)
Quarter: 2013Q2

REPORT INFORMATION
  Report Type: Spontaneous
  Country: FI (occurrence: FI)
  Receive Date: 20130423
  Receipt Date: 20130423
  Transmission Date: 20140414
  Serious: Yes (Life-Threatening)
  Sender: FDA-Public Use
  Company Number: FI-PFIZER INC-2013126862

PATIENT
  Age: 58 Year
  Sex: Female

DRUGS (9)
  1. CORDARONE [Suspect]
     Indication: ATRIAL FLUTTER
     Dosage: 400 MG, DAILY
     Route: 048
     Dates: start: 20130315, end: 20130405
  2. PLAVIX [Concomitant]
     Dosage: 75 MG, DAILY
  3. SALAZOPYRIN [Concomitant]
     Dosage: 2000 MG, DAILY
  4. KALEORID [Concomitant]
     Dosage: 2 G, DAILY
  5. PRIMASPAN [Concomitant]
     Dosage: 100 MG, DAILY
  6. FURESIS [Concomitant]
     Dosage: 40 MG, DAILY
  7. LOPRIL [Concomitant]
     Dosage: 37.5 MG, DAILY
  8. PREDNISOLON [Concomitant]
     Dosage: 5 MG, DAILY
  9. SIMVASTATIN [Concomitant]
     Dosage: 20 MG, DAILY

REACTIONS (3)
  - Alanine aminotransferase increased [Not Recovered/Not Resolved]
  - Blood alkaline phosphatase increased [Not Recovered/Not Resolved]
  - Gamma-glutamyltransferase increased [Not Recovered/Not Resolved]
